FAERS Safety Report 5222145-9 (Version None)
Quarter: 2007Q1

REPORT INFORMATION
  Report Type: 
  Country: None (occurrence: None)
  Receive Date: 20070129
  Receipt Date: 20060824
  Transmission Date: 20070707
  Serious: No
  Sender: FDA-Public Use
  Company Number: US-GLAXOSMITHKLINE-A0614696A

PATIENT
  Age: 55 Year
  Sex: Female

DRUGS (3)
  1. WELLBUTRIN [Suspect]
     Indication: ANXIETY
     Route: 048
     Dates: start: 20000101
  2. LIPITOR [Concomitant]
     Dosage: 10MG PER DAY
     Route: 048
  3. LEVOXYL [Concomitant]
     Dosage: 88MG PER DAY
     Route: 048

REACTIONS (2)
  - MENTAL STATUS CHANGES [None]
  - TARDIVE DYSKINESIA [None]
